FAERS Safety Report 18125249 (Version 1)
Quarter: 2020Q3

REPORT INFORMATION
  Report Type: Spontaneous
  Country: RO (occurrence: RO)
  Receive Date: 20200807
  Receipt Date: 20200807
  Transmission Date: 20201103
  Serious: Yes (Other)
  Sender: FDA-Public Use
  Company Number: RO-AMGEN-ROUSP2020123752

PATIENT
  Age: 73 Year
  Sex: Female

DRUGS (4)
  1. XGEVA [Suspect]
     Active Substance: DENOSUMAB
     Indication: BONE LESION
     Dosage: 120 MILLIGRAM, Q4WK
     Route: 058
     Dates: start: 2014, end: 2017
  2. PAZOPANIB [Concomitant]
     Active Substance: PAZOPANIB
     Indication: BONE LESION
     Dosage: 800 MILLIGRAM, QD
     Route: 048
  3. NIVOLUMAB [Concomitant]
     Active Substance: NIVOLUMAB
     Dosage: 3 MICROGRAM/KILOGRAM, Q2WK
     Dates: start: 2016, end: 201705
  4. AXITINIB [Concomitant]
     Active Substance: AXITINIB

REACTIONS (2)
  - Osteonecrosis of jaw [Unknown]
  - Osteitis [Recovering/Resolving]

NARRATIVE: CASE EVENT DATE: 201703
